FAERS Safety Report 22741661 (Version 5)
Quarter: 2023Q4

REPORT INFORMATION
  Report Type: Spontaneous
  Country: CA (occurrence: None)
  Receive Date: 20230724
  Receipt Date: 20231010
  Transmission Date: 20240109
  Serious: Yes (Disabling, Other)
  Sender: FDA-Public Use
  Company Number: CA-PFIZER INC-202300254633

PATIENT
  Age: 77 Year
  Sex: Female
  Weight: 73 kg

DRUGS (16)
  1. METHOTREXATE [Suspect]
     Active Substance: METHOTREXATE
     Indication: Rheumatoid arthritis
     Dates: start: 201301
  2. METHOTREXATE [Suspect]
     Active Substance: METHOTREXATE
     Dates: start: 202205
  3. METHOTREXATE [Suspect]
     Active Substance: METHOTREXATE
     Dates: start: 202205
  4. AMLODIPINE [Concomitant]
     Active Substance: AMLODIPINE BESYLATE
     Indication: Hypertension
  5. ASPIRIN [Concomitant]
     Active Substance: ASPIRIN
  6. ATORVASTATIN [Concomitant]
     Active Substance: ATORVASTATIN
     Indication: Dyslipidaemia
  7. BETAHISTINE [Concomitant]
     Active Substance: BETAHISTINE
  8. CANDESARTAN [Concomitant]
     Active Substance: CANDESARTAN
  9. FOLIC ACID [Concomitant]
     Active Substance: FOLIC ACID
     Indication: Prophylaxis
     Dosage: 6 TIMES IN A WEEK
     Dates: start: 201301
  10. PROLIA [Concomitant]
     Active Substance: DENOSUMAB
  11. CHOLECALCIFEROL [Concomitant]
     Active Substance: CHOLECALCIFEROL
  12. ARAVA [Concomitant]
     Active Substance: LEFLUNOMIDE
     Dates: start: 202205
  13. ARAVA [Concomitant]
     Active Substance: LEFLUNOMIDE
     Dates: start: 202205
  14. ARAVA [Concomitant]
     Active Substance: LEFLUNOMIDE
     Dates: start: 202205
  15. LEFLUNOMIDE [Concomitant]
     Active Substance: LEFLUNOMIDE
     Indication: Rheumatoid arthritis
     Dates: start: 201301
  16. PREDNISONE [Concomitant]
     Active Substance: PREDNISONE
     Indication: Rheumatoid arthritis
     Dates: start: 20230417

REACTIONS (8)
  - Drug ineffective [Unknown]
  - Rheumatoid arthritis [Not Recovered/Not Resolved]
  - Swollen joint count increased [Not Recovered/Not Resolved]
  - Tender joint count increased [Not Recovered/Not Resolved]
  - Interstitial lung disease [Not Recovered/Not Resolved]
  - Alopecia [Not Recovered/Not Resolved]
  - Feeling abnormal [Unknown]
  - Fibrosis [Not Recovered/Not Resolved]

NARRATIVE: CASE EVENT DATE: 20230101
